FAERS Safety Report 25870916 (Version 1)
Quarter: 2025Q4

REPORT INFORMATION
  Report Type: Spontaneous
  Country: RS (occurrence: RS)
  Receive Date: 20251001
  Receipt Date: 20251001
  Transmission Date: 20260118
  Serious: Yes (Other)
  Sender: VIIV
  Company Number: RS-VIIV HEALTHCARE-RS2025EME123113

PATIENT
  Age: 31 Year
  Sex: Male

DRUGS (2)
  1. DOVATO [Suspect]
     Active Substance: DOLUTEGRAVIR SODIUM\LAMIVUDINE
     Indication: HIV infection
     Dosage: UNK
  2. PNEUMOCOCCAL VACCINE CONJ 20V (CRM197) [Concomitant]
     Indication: Prophylaxis
     Dosage: UNK

REACTIONS (2)
  - Anogenital dysplasia [Unknown]
  - Papilloma viral infection [Unknown]
